FAERS Safety Report 4758719-9 (Version None)
Quarter: 2005Q3

REPORT INFORMATION
  Report Type: 
  Country: None (occurrence: None)
  Receive Date: 20050826
  Receipt Date: 20050811
  Transmission Date: 20060218
  Serious: Yes (Death)
  Sender: FDA-Public Use
  Company Number: 2005-01727

PATIENT
  Age: 69 Year
  Sex: Male
  Weight: 121.8 kg

DRUGS (5)
  1. INTEGRILIN [Suspect]
     Indication: ACUTE CORONARY SYNDROME
     Dosage: SEE IMAGE, INTRAVENOUS
     Route: 042
     Dates: start: 20050704, end: 20050704
  2. INTEGRILIN [Suspect]
     Indication: ACUTE CORONARY SYNDROME
     Dosage: SEE IMAGE, INTRAVENOUS
     Route: 042
     Dates: start: 20050704, end: 20050705
  3. PLAVIX [Concomitant]
  4. ASPIRIN [Concomitant]
  5. HEPARIN [Concomitant]

REACTIONS (5)
  - ANURIA [None]
  - CATHETER SITE HAEMATOMA [None]
  - HAEMATOMA [None]
  - HAEMATURIA [None]
  - THROMBOSIS [None]
